FAERS Safety Report 5942395-3 (Version None)
Quarter: 2008Q4

REPORT INFORMATION
  Report Type: 
  Country: None (occurrence: None)
  Receive Date: 20081103
  Receipt Date: 20081021
  Transmission Date: 20090506
  Serious: Yes (Hospitalization)
  Sender: FDA-Public Use
  Company Number: GXKR2008IT10116

PATIENT
  Sex: Male

DRUGS (1)
  1. CLARITHROMYCIN [Suspect]

REACTIONS (2)
  - HAEMATOMA [None]
  - PANCYTOPENIA [None]
